FAERS Safety Report 16896341 (Version 3)
Quarter: 2019Q4

REPORT INFORMATION
  Report Type: Report from Study
  Country: KR (occurrence: KR)
  Receive Date: 20191008
  Receipt Date: 20191119
  Transmission Date: 20200122
  Serious: Yes (Hospitalization)
  Sender: FDA-Public Use
  Company Number: KR-CELGENEUS-KOR-20191000003

PATIENT
  Age: 62 Year
  Sex: Male
  Weight: 55 kg

DRUGS (11)
  1. ABRAXANE [Suspect]
     Active Substance: PACLITAXEL
     Indication: ADENOCARCINOMA PANCREAS
     Route: 041
     Dates: start: 20190806, end: 20190917
  2. DEXAMETHASONE. [Concomitant]
     Active Substance: DEXAMETHASONE
     Indication: PREMEDICATION
     Dosage: 5 MILLIGRAM
     Route: 041
  3. OXYCODONE [Concomitant]
     Active Substance: OXYCODONE
     Indication: ABDOMINAL PAIN
     Dosage: 15 MILLIGRAM
     Route: 048
  4. GEMCITABINE. [Suspect]
     Active Substance: GEMCITABINE
     Route: 065
     Dates: start: 20191007, end: 20191007
  5. LORAZEPAM. [Concomitant]
     Active Substance: LORAZEPAM
     Indication: PREMEDICATION
     Dosage: 1 MILLIGRAM
     Route: 041
  6. NYSTATIN SUSPENSION [Concomitant]
     Active Substance: NYSTATIN
     Indication: STOMATITIS
     Dosage: 15 MILLILITER
     Route: 048
  7. GELMA SUSPENSION [Concomitant]
     Indication: GASTRITIS PROPHYLAXIS
     Dosage: 1 PACK
     Route: 048
  8. GEMCITABINE. [Suspect]
     Active Substance: GEMCITABINE
     Indication: ADENOCARCINOMA PANCREAS
     Route: 041
     Dates: start: 20190806, end: 20190917
  9. GEMCITABINE. [Suspect]
     Active Substance: GEMCITABINE
     Route: 065
     Dates: start: 20191014, end: 20191014
  10. MEGESTROL ACETATE. [Concomitant]
     Active Substance: MEGESTROL ACETATE
     Indication: PROPHYLAXIS
     Dosage: 1 PACK
     Route: 048
  11. FENTANYL TRANSDERMAL SYSTEM [Concomitant]
     Active Substance: FENTANYL
     Indication: ABDOMINAL PAIN
     Route: 062

REACTIONS (1)
  - Cholangitis [Recovered/Resolved]

NARRATIVE: CASE EVENT DATE: 20190928
